FAERS Safety Report 7372889-8 (Version None)
Quarter: 2011Q1

REPORT INFORMATION
  Report Type: 
  Country: None (occurrence: None)
  Receive Date: 20110324
  Receipt Date: 20110316
  Transmission Date: 20110831
  Serious: Yes (Hospitalization)
  Sender: FDA-Public Use
  Company Number: FR-PFIZER INC-FRWYE426015FEB05

PATIENT
  Age: 46 Year
  Sex: Female

DRUGS (1)
  1. SIROLIMUS [Suspect]
     Indication: PROPHYLAXIS AGAINST TRANSPLANT REJECTION
     Dosage: UNKNOWN
     Route: 048
     Dates: start: 20041007, end: 20041112

REACTIONS (2)
  - IMPAIRED HEALING [None]
  - ABDOMINAL CAVITY DRAINAGE [None]
